FAERS Safety Report 4658171-8 (Version None)
Quarter: 2005Q2

REPORT INFORMATION
  Report Type: 
  Country: None (occurrence: None)
  Receive Date: 20050504
  Receipt Date: 20040728
  Transmission Date: 20051028
  Serious: Yes (Other)
  Sender: FDA-Public Use
  Company Number: PHEH2004US08200

PATIENT
  Age: 33 Year
  Sex: Female

DRUGS (3)
  1. DIOVAN HCT [Suspect]
     Indication: HYPERTENSION
     Dosage: ONE TABLET, QD, ORAL
     Dates: end: 20040601
  2. DIOVAN HCT [Suspect]
     Indication: HYPERTENSION
     Dosage: ONE TABLET, QD, ORAL
     Dates: start: 20040601, end: 20040727
  3. VERAPAMIL [Concomitant]

REACTIONS (2)
  - SKIN CHAPPED [None]
  - SWELLING FACE [None]
